FAERS Safety Report 14688265 (Version 1)
Quarter: 2018Q1

REPORT INFORMATION
  Report Type: Spontaneous
  Country: NL (occurrence: NL)
  Receive Date: 20180328
  Receipt Date: 20180328
  Transmission Date: 20180509
  Serious: Yes (Hospitalization)
  Sender: FDA-Public Use
  Company Number: NL-ACCORD-065106

PATIENT
  Age: 59 Year
  Sex: Female

DRUGS (5)
  1. PREDNISOLONE. [Suspect]
     Active Substance: PREDNISOLONE
     Indication: IMMUNOSUPPRESSANT DRUG THERAPY
     Dosage: PREDNISOLONE 10 MG DAILY PO
     Route: 048
  2. ETHAMBUTOL [Concomitant]
     Active Substance: ETHAMBUTOL HYDROCHLORIDE
     Indication: MYCOBACTERIAL INFECTION
     Dosage: 1200 MG QD PO
     Route: 048
  3. MYCOPHENOLATE MOFETIL/MYCOPHENOLATE SODIUM/MYCOPHENOLIC ACID [Suspect]
     Active Substance: MYCOPHENOLIC ACID
     Indication: IMMUNOSUPPRESSANT DRUG THERAPY
     Dosage: 750 MG (MORNING DOSAGE) AND 500 MG (EVENING DOSAGE)
     Route: 048
  4. AZITHROMYCIN ANHYDROUS. [Concomitant]
     Active Substance: AZITHROMYCIN ANHYDROUS
     Indication: MYCOBACTERIAL INFECTION
     Dosage: 250 MG DAILY (QD) PO (FIRST DOSE 500 MG PO)
     Route: 048
  5. RIFAMPICIN [Interacting]
     Active Substance: RIFAMPIN
     Indication: MYCOBACTERIAL INFECTION
     Dosage: RIFAMPIN 600 MG QD PO
     Route: 048

REACTIONS (2)
  - Mycobacterial infection [Recovered/Resolved]
  - Drug interaction [Unknown]
